FAERS Safety Report 20137783 (Version 1)
Quarter: 2021Q4

REPORT INFORMATION
  Report Type: Spontaneous
  Country: US (occurrence: US)
  Receive Date: 20211202
  Receipt Date: 20211202
  Transmission Date: 20220303
  Serious: No
  Sender: FDA-Public Use
  Company Number: US-JNJFOC-20211147467

PATIENT
  Age: 5 Decade
  Sex: Female
  Weight: 90.800 kg

DRUGS (4)
  1. STELARA [Suspect]
     Active Substance: USTEKINUMAB
     Indication: Product used for unknown indication
     Route: 058
     Dates: start: 202105
  2. STELARA [Suspect]
     Active Substance: USTEKINUMAB
  3. LISINOPRIL [Concomitant]
     Active Substance: LISINOPRIL
     Indication: Hypertension
     Route: 065
  4. AMLODIPINE [Concomitant]
     Active Substance: AMLODIPINE BESYLATE
     Indication: Product used for unknown indication
     Route: 065

REACTIONS (5)
  - SARS-CoV-2 test positive [Unknown]
  - Ear infection [Unknown]
  - Bronchitis [Unknown]
  - Nasal congestion [Unknown]
  - Product storage error [Unknown]

NARRATIVE: CASE EVENT DATE: 20210101
